FAERS Safety Report 5931132-4 (Version None)
Quarter: 2008Q4

REPORT INFORMATION
  Report Type: 
  Country: None (occurrence: None)
  Receive Date: 20081027
  Receipt Date: 20081016
  Transmission Date: 20090506
  Serious: Yes (Other)
  Sender: FDA-Public Use
  Company Number: PHHY2008DE25029

PATIENT
  Sex: Female
  Weight: 94 kg

DRUGS (4)
  1. EXFORGE [Suspect]
     Indication: ESSENTIAL HYPERTENSION
     Dosage: 10/160 MG/D
     Dates: start: 20080320
  2. ESIDRIX [Concomitant]
     Dosage: 25 MG/D
     Dates: start: 20080320
  3. EBRANTIL [Concomitant]
     Dosage: 120 MG/D
     Dates: start: 20080320, end: 20080716
  4. METOHEXAL SUCCI [Concomitant]

REACTIONS (2)
  - BLOOD PRESSURE INADEQUATELY CONTROLLED [None]
  - RENAL FAILURE [None]
